FAERS Safety Report 23744400 (Version 5)
Quarter: 2024Q3

REPORT INFORMATION
  Report Type: Spontaneous
  Country: FR (occurrence: FR)
  Receive Date: 20240415
  Receipt Date: 20240906
  Transmission Date: 20241016
  Serious: Yes (Hospitalization, Other)
  Sender: SANOFI AVENTIS
  Company Number: None

PATIENT
  Age: 7 Month
  Sex: Male
  Weight: 5.48 kg

DRUGS (24)
  1. PREDNISOLONE [Interacting]
     Active Substance: PREDNISOLONE
     Dosage: 7.5 MG QD
     Route: 048
     Dates: start: 20240308, end: 20240405
  2. PREDNISOLONE [Interacting]
     Active Substance: PREDNISOLONE
     Dosage: 5 MG, QD
     Route: 048
  3. PREDNISOLONE [Interacting]
     Active Substance: PREDNISOLONE
     Dosage: 5 MG, QOD
     Route: 048
  4. RIFADIN [Interacting]
     Active Substance: RIFAMPIN
     Indication: Tuberculosis
     Dosage: 160 MG QD
     Route: 048
     Dates: start: 20240307, end: 20240416
  5. RIFADIN [Interacting]
     Active Substance: RIFAMPIN
     Dosage: 200 MG, QD
     Route: 048
     Dates: start: 20240416
  6. NICARDIPINE [Interacting]
     Active Substance: NICARDIPINE
     Indication: Hypertension
     Dosage: 1.5 MG, QD
     Route: 048
     Dates: start: 20240310, end: 20240325
  7. NICARDIPINE [Interacting]
     Active Substance: NICARDIPINE
     Dosage: 2.70 MG, QD
     Route: 048
     Dates: start: 20240315
  8. NICARDIPINE [Interacting]
     Active Substance: NICARDIPINE
     Dosage: 5 MG, QD
     Route: 048
     Dates: start: 20240315
  9. NICARDIPINE [Interacting]
     Active Substance: NICARDIPINE
     Dosage: 10 MG, QD
     Route: 048
     Dates: start: 20240320
  10. NICARDIPINE [Interacting]
     Active Substance: NICARDIPINE
     Dosage: 13.50 MG, QD
     Route: 048
     Dates: start: 20240322
  11. NICARDIPINE [Interacting]
     Active Substance: NICARDIPINE
     Dosage: 0.10 MG/KG, TID
     Route: 048
  12. NICARDIPINE [Interacting]
     Active Substance: NICARDIPINE
     Dosage: 13.500MG QD
     Route: 048
  13. NICARDIPINE [Interacting]
     Active Substance: NICARDIPINE
     Dosage: 5.000MG QD
     Route: 048
  14. NICARDIPINE [Interacting]
     Active Substance: NICARDIPINE
     Dosage: 10.000MG QD
     Route: 048
  15. NICARDIPINE [Interacting]
     Active Substance: NICARDIPINE
     Dosage: 1.500MG QD
     Route: 048
     Dates: start: 20240310, end: 20240325
  16. NICARDIPINE [Interacting]
     Active Substance: NICARDIPINE
     Dosage: 2.700MG QD
     Route: 048
  17. PYRAZINAMIDE [Concomitant]
     Active Substance: PYRAZINAMIDE
     Dosage: UNK
  18. PYRAZINAMIDE [Concomitant]
     Active Substance: PYRAZINAMIDE
  19. ISONIAZID [Concomitant]
     Active Substance: ISONIAZID
     Dosage: UNK
  20. ISONIAZID [Concomitant]
     Active Substance: ISONIAZID
  21. ETHAMBUTOL HYDROCHLORIDE [Concomitant]
     Active Substance: ETHAMBUTOL HYDROCHLORIDE
     Dosage: UNK
  22. ETHAMBUTOL HYDROCHLORIDE [Concomitant]
     Active Substance: ETHAMBUTOL HYDROCHLORIDE
  23. ESOMEPRAZOLE [Concomitant]
     Active Substance: ESOMEPRAZOLE
     Dosage: UNK
  24. ESOMEPRAZOLE [Concomitant]
     Active Substance: ESOMEPRAZOLE

REACTIONS (2)
  - Hypertension [Recovered/Resolved]
  - Drug interaction [Recovered/Resolved]

NARRATIVE: CASE EVENT DATE: 20240313
